FAERS Safety Report 7606997-0 (Version None)
Quarter: 2011Q3

REPORT INFORMATION
  Report Type: 
  Country: None (occurrence: None)
  Receive Date: 20110713
  Receipt Date: 20110705
  Transmission Date: 20111222
  Serious: Yes (Other)
  Sender: FDA-Public Use
  Company Number: CHPA2011BR08774

PATIENT
  Sex: Female
  Weight: 64 kg

DRUGS (5)
  1. NICOTINE [Suspect]
     Indication: SMOKING CESSATION THERAPY
     Dosage: 21 MG, QD
     Route: 062
  2. NICOTINE [Suspect]
     Dosage: 14 MG, QD
     Route: 062
  3. SERETIDE ^ALLEN + HANBURYS LTD^ [Concomitant]
     Indication: BRONCHITIS
     Dosage: 1 DF, BID
     Dates: start: 20000101
  4. NICOTINE [Suspect]
     Dosage: UNK, UNK
     Route: 062
     Dates: start: 19850101
  5. NICOTINE [Suspect]
     Dosage: 7 MG, QD
     Route: 062

REACTIONS (12)
  - CHRONIC OBSTRUCTIVE PULMONARY DISEASE [None]
  - BRONCHITIS [None]
  - DEPRESSION [None]
  - TRAUMATIC SHOCK [None]
  - WEIGHT INCREASED [None]
  - OVERDOSE [None]
  - FIBROMYALGIA [None]
  - SPEECH DISORDER [None]
  - TREATMENT NONCOMPLIANCE [None]
  - HYPOTHYROIDISM [None]
  - DYSPHEMIA [None]
  - DECREASED APPETITE [None]
